FAERS Safety Report 19017858 (Version 1)
Quarter: 2021Q1

REPORT INFORMATION
  Report Type: Spontaneous
  Country: US (occurrence: US)
  Receive Date: 20210316
  Receipt Date: 20210316
  Transmission Date: 20210420
  Serious: Yes (Other)
  Sender: FDA-Public Use
  Company Number: None

PATIENT
  Age: 62 Year
  Sex: Female
  Weight: 58.5 kg

DRUGS (4)
  1. MONISTAT 1 COMBINATION PACK [Suspect]
     Active Substance: MICONAZOLE NITRATE
     Indication: FUNGAL INFECTION
     Dosage: ?          QUANTITY:1 SUPPOSITORY(IES);OTHER FREQUENCY:1?TIME USE;?
     Route: 067
     Dates: start: 20201212, end: 20201212
  2. PREMARIN [Concomitant]
     Active Substance: ESTROGENS, CONJUGATED
  3. VITAMIN D [Concomitant]
     Active Substance: VITAMIN D NOS
  4. CALCIUM [Concomitant]
     Active Substance: CALCIUM

REACTIONS (1)
  - Chemical burn [None]

NARRATIVE: CASE EVENT DATE: 20201212
